FAERS Safety Report 7412388-8 (Version None)
Quarter: 2011Q2

REPORT INFORMATION
  Report Type: 
  Country: None (occurrence: None)
  Receive Date: 20110413
  Receipt Date: 20110411
  Transmission Date: 20111010
  Serious: Yes (Other)
  Sender: FDA-Public Use
  Company Number: CA-PFIZER INC-2011045781

PATIENT
  Sex: Female

DRUGS (13)
  1. CALCIUM [Concomitant]
     Dosage: 500 MG, UNK
  2. REVATIO [Suspect]
     Indication: PULMONARY HYPERTENSION
     Dosage: 20 UNK, UNK
     Dates: start: 20070101, end: 20100901
  3. TRACLEER [Concomitant]
     Dosage: 125 MG, 2X/DAY
  4. SYNTHROID [Concomitant]
     Dosage: 0.125 MG, 1X/DAY (MORNING)
  5. VITAMIN E [Concomitant]
     Dosage: UNK
  6. SILDENAFIL [Suspect]
     Indication: PULMONARY HYPERTENSION
     Dosage: UNK
     Dates: start: 20100901, end: 20110201
  7. LANOXIN [Concomitant]
     Dosage: 0.125 MG, UNK
  8. HYDROXYCHLOROQUINE [Concomitant]
     Dosage: 400 MG, (2X200MG) IN THE MORNING
  9. GLUCOSAMINE W/CHONDROITIN SULFATES [Concomitant]
     Dosage: 900 MG, UNK
  10. AZ A [Concomitant]
     Dosage: 50 MG, 1 TABLET IN THE MORNING AND 2 TABLETS AT BEDTIME
  11. ARTHROTEC [Concomitant]
     Dosage: 75/200 MCG, 2X/DAY
  12. ASPIRIN [Concomitant]
     Dosage: 81 MG, 1X/DAY IN THE MORNING
  13. VITAMIN D [Concomitant]
     Dosage: UNK

REACTIONS (5)
  - CONVULSION [None]
  - SYNCOPE [None]
  - DYSPNOEA [None]
  - GAIT DISTURBANCE [None]
  - PULMONARY HYPERTENSION [None]
